FAERS Safety Report 20320662 (Version 1)
Quarter: 2022Q1

REPORT INFORMATION
  Report Type: Spontaneous
  Country: US (occurrence: US)
  Receive Date: 20220111
  Receipt Date: 20220111
  Transmission Date: 20220423
  Serious: Yes (Other)
  Sender: FDA-Public Use
  Company Number: US-GLAXOSMITHKLINE-US2022GSK004296

PATIENT
  Sex: Male

DRUGS (2)
  1. RANITIDINE HYDROCHLORIDE [Suspect]
     Active Substance: RANITIDINE HYDROCHLORIDE
     Indication: Hypersensitivity
     Dosage: 150 MG, QD
     Route: 065
     Dates: start: 201604, end: 201807
  2. RANITIDINE HYDROCHLORIDE [Suspect]
     Active Substance: RANITIDINE HYDROCHLORIDE
     Indication: Hypersensitivity
     Dosage: 150 MG, QD
     Route: 065
     Dates: start: 201604, end: 201807

REACTIONS (1)
  - Prostate cancer [Unknown]
